FAERS Safety Report 18945135 (Version 1)
Quarter: 2021Q1

REPORT INFORMATION
  Report Type: Spontaneous
  Country: DE (occurrence: PL)
  Receive Date: 20210226
  Receipt Date: 20210226
  Transmission Date: 20210420
  Serious: Yes (Other)
  Sender: FDA-Public Use
  Company Number: PL-ELI_LILLY_AND_COMPANY-PL202102010724

PATIENT
  Age: 65 Year
  Sex: Male

DRUGS (5)
  1. 5 FLUOROURACIL [FLUOROURACIL] [Concomitant]
     Active Substance: FLUOROURACIL
     Indication: TONSIL CANCER
     Dosage: UNK
     Dates: start: 2020, end: 20201027
  2. CISPLATIN. [Concomitant]
     Active Substance: CISPLATIN
     Indication: TONSIL CANCER
     Dosage: 100 MG/M2, UNK
  3. ERBITUX [Suspect]
     Active Substance: CETUXIMAB
     Indication: TONSIL CANCER
     Dosage: UNK, UNKNOWN
     Route: 065
     Dates: start: 2020, end: 20201027
  4. CISPLATIN. [Concomitant]
     Active Substance: CISPLATIN
     Dosage: 40 MG/M2, UNK
  5. CISPLATIN. [Concomitant]
     Active Substance: CISPLATIN
     Dosage: UNK
     Dates: start: 2020, end: 20201027

REACTIONS (3)
  - Leukopenia [Unknown]
  - Blood creatine increased [Unknown]
  - Neutropenia [Unknown]
